FAERS Safety Report 4437122-5 (Version None)
Quarter: 2004Q3

REPORT INFORMATION
  Report Type: 
  Country: None (occurrence: None)
  Receive Date: 20040726
  Receipt Date: 20040322
  Transmission Date: 20050211
  Serious: No
  Sender: FDA-Public Use
  Company Number: USA040362836

PATIENT
  Age: 71 Year
  Sex: Female

DRUGS (3)
  1. FORTEO [Suspect]
     Dates: start: 20040303, end: 20040319
  2. ALPHAGAN [Concomitant]
  3. METOPROLOL [Concomitant]

REACTIONS (3)
  - EYE PAIN [None]
  - EYE REDNESS [None]
  - INTRAOCULAR PRESSURE INCREASED [None]
